FAERS Safety Report 9149773 (Version 1)
Quarter: 2013Q1

REPORT INFORMATION
  Report Type: Spontaneous
  Country: US (occurrence: None)
  Receive Date: 20130201
  Receipt Date: 20130201
  Transmission Date: 20140127
  Serious: Yes (Other)
  Sender: FDA-Public Use
  Company Number: 1579454

PATIENT
  Age: 61 Year
  Sex: Female

DRUGS (4)
  1. CARBOPLATIN [Suspect]
     Indication: OVARIAN CANCER
  2. GEMCITABINE [Suspect]
  3. DOXORUBICIN HYDROCHLORIDE [Suspect]
  4. PACLITAXEL [Concomitant]

REACTIONS (3)
  - Hypertension [None]
  - Renal failure chronic [None]
  - Thrombotic microangiopathy [None]
